FAERS Safety Report 5406196-7 (Version None)
Quarter: 2007Q3

REPORT INFORMATION
  Report Type: 
  Country: None (occurrence: None)
  Receive Date: 20070806
  Receipt Date: 20070731
  Transmission Date: 20080115
  Serious: Yes (Hospitalization, Other)
  Sender: FDA-Public Use
  Company Number: TR-ABBOTT-07P-161-0376425-00

PATIENT
  Age: 16 Year
  Sex: Female

DRUGS (4)
  1. WARFARIN SODIUM [Suspect]
     Indication: DRUG USE FOR UNKNOWN INDICATION
     Dosage: 32 TABLETS OF 5 MG
  2. PROPAFENONE HCL [Suspect]
     Indication: DRUG USE FOR UNKNOWN INDICATION
     Dosage: 15 TABLETS OF 300MG
  3. PROPAFENONE HCL [Suspect]
     Dosage: 15 TABLETS OF 300 MG
  4. DIGOXIN [Interacting]
     Indication: DRUG USE FOR UNKNOWN INDICATION
     Dosage: 20 TABLETS OF 0.25 MG

REACTIONS (4)
  - BRADYCARDIA [None]
  - DRUG INTERACTION [None]
  - OVERDOSE [None]
  - SUICIDE ATTEMPT [None]
